FAERS Safety Report 14735454 (Version 2)
Quarter: 2018Q3

REPORT INFORMATION
  Report Type: Report from Study
  Country: US (occurrence: US)
  Receive Date: 20180409
  Receipt Date: 20180705
  Transmission Date: 20181010
  Serious: No
  Sender: FDA-Public Use
  Company Number: US-IPSEN BIOPHARMACEUTICALS, INC.-2017-14531

PATIENT
  Age: 2 Year
  Sex: Male
  Weight: 14.8 kg

DRUGS (5)
  1. DYSPORT [Suspect]
     Active Substance: ABOBOTULINUMTOXINA
     Indication: MUSCLE SPASTICITY
     Dosage: 400 UNITS
     Route: 030
     Dates: start: 20171108, end: 20171108
  2. BACLOFEN. [Concomitant]
     Active Substance: BACLOFEN
     Route: 048
     Dates: start: 20180227
  3. ALBUTEROL. [Concomitant]
     Active Substance: ALBUTEROL
     Indication: LUNG DISORDER
     Dates: start: 20170616
  4. DYSPORT [Suspect]
     Active Substance: ABOBOTULINUMTOXINA
     Dosage: 400 UNITS
     Route: 030
     Dates: start: 20180313, end: 20180313
  5. BACLOFEN. [Concomitant]
     Active Substance: BACLOFEN
     Indication: MUSCLE SPASTICITY
     Dosage: 10 MG TWICE PER DAY; 5 MG ONCE PER DAY
     Route: 048
     Dates: start: 20170619, end: 20180227

REACTIONS (5)
  - Off label use [Unknown]
  - Influenza [Recovered/Resolved]
  - Nasal polyps [Recovered/Resolved]
  - Rhinitis allergic [Recovered/Resolved]
  - Foreign body [Recovered/Resolved]

NARRATIVE: CASE EVENT DATE: 20171201
